FAERS Safety Report 16213031 (Version 4)
Quarter: 2023Q2

REPORT INFORMATION
  Report Type: Spontaneous
  Country: US (occurrence: US)
  Receive Date: 20190418
  Receipt Date: 20230417
  Transmission Date: 20230722
  Serious: Yes (Other)
  Sender: FDA-Public Use
  Company Number: US-JNJFOC-20190329421

PATIENT
  Age: 40 Year
  Sex: Female
  Weight: 95.340 kg

DRUGS (14)
  1. TREMFYA [Suspect]
     Active Substance: GUSELKUMAB
     Indication: Psoriasis
     Route: 058
     Dates: start: 201902, end: 201903
  2. AMLODIPINE [Concomitant]
     Active Substance: AMLODIPINE BESYLATE
  3. ATORVASTATIN [Concomitant]
     Active Substance: ATORVASTATIN
  4. CRESTOR [Concomitant]
     Active Substance: ROSUVASTATIN CALCIUM
  5. DIGOX [Concomitant]
     Active Substance: DIGOXIN
  6. HUMALOG [Concomitant]
     Active Substance: INSULIN LISPRO
  7. JARDIANCE [Concomitant]
     Active Substance: EMPAGLIFLOZIN
  8. LASIX [Concomitant]
     Active Substance: FUROSEMIDE
  9. LEVEMIR [Concomitant]
     Active Substance: INSULIN DETEMIR
  10. METOPROLOL TARTRATE AND HYDROCHLOROTHIAZIDE [Concomitant]
     Active Substance: HYDROCHLOROTHIAZIDE\METOPROLOL TARTRATE
  11. SENEXON [Concomitant]
  12. SOTALOL [Concomitant]
     Active Substance: SOTALOL
  13. VICTOZA [Concomitant]
     Active Substance: LIRAGLUTIDE
  14. XANAX [Concomitant]
     Active Substance: ALPRAZOLAM

REACTIONS (5)
  - Upper respiratory tract infection [Recovering/Resolving]
  - Nausea [Recovering/Resolving]
  - Vomiting [Recovering/Resolving]
  - Diarrhoea [Recovering/Resolving]
  - Cough [Recovered/Resolved]
